FAERS Safety Report 21515033 (Version 1)
Quarter: 2022Q4

REPORT INFORMATION
  Report Type: Spontaneous
  Country: US (occurrence: US)
  Receive Date: 20221027
  Receipt Date: 20221027
  Transmission Date: 20230113
  Serious: No
  Sender: FDA-Public Use
  Company Number: US-UPSHER-SMITH LABORATORIES, LLC-2021USL00827

PATIENT
  Sex: Female

DRUGS (8)
  1. JANTOVEN [Suspect]
     Active Substance: WARFARIN SODIUM
     Indication: Coagulopathy
     Dosage: 3.75 MG, 1X/DAY
     Dates: end: 20211111
  2. JANTOVEN [Suspect]
     Active Substance: WARFARIN SODIUM
     Indication: Heart valve operation
  3. JANTOVEN [Suspect]
     Active Substance: WARFARIN SODIUM
     Indication: Coagulopathy
     Dosage: 3 MG, 1X/DAY
     Dates: start: 20211111
  4. JANTOVEN [Suspect]
     Active Substance: WARFARIN SODIUM
     Indication: Heart valve operation
  5. ALUMINUM OXIDE [Suspect]
     Active Substance: ALUMINUM OXIDE
  6. UNSPECIFIED INGREDIENT [Concomitant]
     Active Substance: UNSPECIFIED INGREDIENT
  7. UNSPECIFIED HEART MEDICINE [Concomitant]
  8. VITAMINS [Concomitant]
     Active Substance: VITAMINS

REACTIONS (6)
  - Stress [Unknown]
  - Fall [Unknown]
  - Muscular weakness [Unknown]
  - Alopecia [Not Recovered/Not Resolved]
  - International normalised ratio fluctuation [Not Recovered/Not Resolved]
  - Contusion [Unknown]
